FAERS Safety Report 25986024 (Version 1)
Quarter: 2025Q4

REPORT INFORMATION
  Report Type: Spontaneous
  Country: US (occurrence: US)
  Receive Date: 20251031
  Receipt Date: 20251031
  Transmission Date: 20260117
  Serious: No
  Sender: MERCK SHARP & DOHME LLC
  Company Number: US-009507513-2338052

PATIENT
  Age: 25 Year
  Sex: Female

DRUGS (10)
  1. SUGAMMADEX [Suspect]
     Active Substance: SUGAMMADEX
     Indication: General anaesthesia
  2. REMIMAZOLAM [Concomitant]
     Active Substance: REMIMAZOLAM
     Indication: Anxiety
     Dosage: 20 MG
  3. PROPOFOL [Concomitant]
     Active Substance: PROPOFOL
     Indication: General anaesthesia
  4. VECURONIUM [Concomitant]
     Active Substance: VECURONIUM BROMIDE
     Indication: General anaesthesia
  5. ROCURONIUM [Concomitant]
     Active Substance: ROCURONIUM BROMIDE
     Indication: General anaesthesia
  6. GLYCOPYRROLATE [Concomitant]
     Active Substance: GLYCOPYRROLATE
     Indication: General anaesthesia
  7. EPINEPHRINE [Concomitant]
     Active Substance: EPINEPHRINE
     Indication: General anaesthesia
  8. NOREPINEPHRINE [Concomitant]
     Active Substance: NOREPINEPHRINE
     Indication: General anaesthesia
  9. PHENYLEPHRINE [Concomitant]
     Active Substance: PHENYLEPHRINE
     Indication: General anaesthesia
  10. VASOPRESSIN [Concomitant]
     Active Substance: VASOPRESSIN
     Indication: General anaesthesia

REACTIONS (1)
  - Maternal exposure during pregnancy [Unknown]
